FAERS Safety Report 6821343-8 (Version None)
Quarter: 2010Q3

REPORT INFORMATION
  Report Type: 
  Country: None (occurrence: None)
  Receive Date: 20100707
  Receipt Date: 20080521
  Transmission Date: 20110219
  Serious: No
  Sender: FDA-Public Use
  Company Number: US-PFIZER INC-2008043936

PATIENT
  Sex: Female
  Weight: 64.545 kg

DRUGS (3)
  1. SERTRALINE [Suspect]
     Indication: INTERMITTENT EXPLOSIVE DISORDER
  2. VALPROIC ACID [Interacting]
     Indication: BORDERLINE PERSONALITY DISORDER
  3. CONTRACEPTIVE, UNSPECIFIED [Concomitant]

REACTIONS (2)
  - DRUG INTERACTION [None]
  - DRUG LEVEL DECREASED [None]
